FAERS Safety Report 21487196 (Version 2)
Quarter: 2022Q4

REPORT INFORMATION
  Report Type: Spontaneous
  Country: US (occurrence: US)
  Receive Date: 20221020
  Receipt Date: 20221103
  Transmission Date: 20230112
  Serious: Yes (Life-Threatening)
  Sender: FDA-Public Use
  Company Number: US-PFIZER INC-PV202200079853

PATIENT
  Age: 18 Year
  Sex: Female
  Weight: 70.6 kg

DRUGS (26)
  1. DEXMEDETOMIDINE HYDROCHLORIDE [Suspect]
     Active Substance: DEXMEDETOMIDINE HYDROCHLORIDE
     Indication: Sedation
     Dosage: INFUSION
  2. DEXMEDETOMIDINE HYDROCHLORIDE [Suspect]
     Active Substance: DEXMEDETOMIDINE HYDROCHLORIDE
     Dosage: INFUSION WAS WEANED OFF ON HD 47
  3. CISATRACURIUM BESYLATE [Suspect]
     Active Substance: CISATRACURIUM BESYLATE
     Indication: Cough
     Dosage: UNK
  4. PROPOFOL [Suspect]
     Active Substance: PROPOFOL
     Indication: Sedation
     Dosage: 30 MCG/KG/MIN
  5. PROPOFOL [Suspect]
     Active Substance: PROPOFOL
     Indication: Cough
     Dosage: TITRATED UP TO 90 MCG/KG/MIN ON HD 30
  6. PROPOFOL [Suspect]
     Active Substance: PROPOFOL
     Dosage: MULTIPLE 35-70 MG BOLUSES
  7. PROPOFOL [Suspect]
     Active Substance: PROPOFOL
     Dosage: AN AVERAGE OF 2.4 PROPOFOL BOLUSES PER DAY OF 50 MG (RANGE 0-8 BOLUSES/DAY, 0-400 MG/DAY)
  8. ROCURONIUM BROMIDE [Suspect]
     Active Substance: ROCURONIUM BROMIDE
     Indication: Cough
     Dosage: ONE DOSE OF ROCURONIUM 1 MG/KG FOR COUGHING EPISODES ON HD 26, 27, 28, AND 30 (2 DOSES)
  9. IPRATROPIUM [Suspect]
     Active Substance: IPRATROPIUM
     Indication: Cough
     Dosage: UNK, AS NEEDED
  10. IPRATROPIUM [Suspect]
     Active Substance: IPRATROPIUM
     Dosage: 500 UG, 4X/DAY
  11. DEXTROMETHORPHAN [Suspect]
     Active Substance: DEXTROMETHORPHAN
     Dosage: 10 MG, SINGLE
  12. TRAZODONE [Suspect]
     Active Substance: TRAZODONE HYDROCHLORIDE
     Dosage: AT BEDTIME
  13. FLUOXETINE [Concomitant]
     Active Substance: FLUOXETINE HYDROCHLORIDE
     Dosage: 10 MG, 1X/DAY
  14. INSULIN NOS [Concomitant]
     Active Substance: INSULIN NOS
     Dosage: UNK
  15. DEXAMETHASONE [Concomitant]
     Active Substance: DEXAMETHASONE
     Dosage: 6 MG, 1X/DAY
  16. REMDESIVIR [Concomitant]
     Active Substance: REMDESIVIR
     Dosage: 200 MG, ONCE ON HD 1
  17. REMDESIVIR [Concomitant]
     Active Substance: REMDESIVIR
     Dosage: 100 MG
  18. ANAKINRA [Concomitant]
     Active Substance: ANAKINRA
     Indication: Inflammation
     Dosage: 100 MG, 3X/DAY
     Route: 042
  19. ANAKINRA [Concomitant]
     Active Substance: ANAKINRA
     Dosage: 300 MG, 3X/DAY
     Route: 042
  20. LINEZOLID [Concomitant]
     Active Substance: LINEZOLID
     Indication: Staphylococcal bacteraemia
     Dosage: UNK
  21. LIDOCAINE [Concomitant]
     Active Substance: LIDOCAINE
     Indication: Cough
     Dosage: NEBULIZED LIDOCAINE 1% 4 ML (40 MG) EVERY 6 HOURS WAS STARTED ON HD 31
  22. ALBUTEROL [Concomitant]
     Active Substance: ALBUTEROL
     Indication: Prophylaxis
     Dosage: 5 MG, 4X/DAY
  23. DEXTROSE [Concomitant]
     Active Substance: DEXTROSE
     Dosage: DEXTROSE 5% IN WATER
  24. GABAPENTIN [Concomitant]
     Active Substance: GABAPENTIN
     Indication: Cough
     Dosage: 300 MG, 3X/DAY
  25. GABAPENTIN [Concomitant]
     Active Substance: GABAPENTIN
     Dosage: 400 MG IN THE MORNING, 400 MG IN THE AFTERNOON, AND 600 MG IN THE EVENING
  26. GABAPENTIN [Concomitant]
     Active Substance: GABAPENTIN
     Dosage: 300 MG IN THE MORNING, 300 MG IN THE AFTERNOON, AND 900 MG IN THE EVENING

REACTIONS (2)
  - Drug ineffective [Unknown]
  - Off label use [Unknown]
